FAERS Safety Report 10179116 (Version 1)
Quarter: 2014Q2

REPORT INFORMATION
  Report Type: Spontaneous
  Country: US (occurrence: US)
  Receive Date: 20140519
  Receipt Date: 20140519
  Transmission Date: 20141212
  Serious: Yes (Other)
  Sender: FDA-Public Use
  Company Number: US-AMGEN-USASP2014035161

PATIENT
  Age: 61 Year
  Sex: Female

DRUGS (1)
  1. PROLIA [Suspect]
     Indication: OSTEOPOROSIS POSTMENOPAUSAL
     Dosage: UNK
     Route: 065
     Dates: start: 20130707

REACTIONS (14)
  - Tooth abscess [Recovering/Resolving]
  - Bedridden [Recovering/Resolving]
  - Tooth disorder [Recovering/Resolving]
  - Back pain [Recovering/Resolving]
  - Ear pain [Recovering/Resolving]
  - Facial pain [Recovering/Resolving]
  - Pain in jaw [Recovering/Resolving]
  - Dizziness [Recovering/Resolving]
  - Headache [Recovering/Resolving]
  - Sinusitis [Recovering/Resolving]
  - Eye pain [Recovering/Resolving]
  - Tooth extraction [Recovering/Resolving]
  - Toothache [Recovering/Resolving]
  - Vertigo [Recovering/Resolving]
